FAERS Safety Report 12632045 (Version 3)
Quarter: 2016Q3

REPORT INFORMATION
  Report Type: Spontaneous
  Country: US (occurrence: US)
  Receive Date: 20160808
  Receipt Date: 20160824
  Transmission Date: 20161109
  Serious: No
  Sender: FDA-Public Use
  Company Number: US-BEH-2016061792

PATIENT
  Sex: Male
  Weight: 79.38 kg

DRUGS (13)
  1. HIZENTRA [Suspect]
     Active Substance: HUMAN IMMUNOGLOBULIN G
     Dosage: UNK
     Route: 058
  2. HIZENTRA [Suspect]
     Active Substance: HUMAN IMMUNOGLOBULIN G
     Dosage: 11 G, QW
     Route: 058
  3. HIZENTRA [Suspect]
     Active Substance: HUMAN IMMUNOGLOBULIN G
     Indication: HYPER IGM SYNDROME
     Route: 058
  4. EPIPEN [Concomitant]
     Active Substance: EPINEPHRINE
  5. RHINOCORT [Concomitant]
     Active Substance: BUDESONIDE
  6. TYLENOL [Concomitant]
     Active Substance: ACETAMINOPHEN
  7. BENZOYL PEROXIDE. [Concomitant]
     Active Substance: BENZOYL PEROXIDE
  8. ALBUTEROL. [Concomitant]
     Active Substance: ALBUTEROL
  9. BACTRIM DS [Concomitant]
     Active Substance: SULFAMETHOXAZOLE\TRIMETHOPRIM
  10. DIPHENHYDRAMINE. [Concomitant]
     Active Substance: DIPHENHYDRAMINE
  11. TAMIFLU [Concomitant]
     Active Substance: OSELTAMIVIR PHOSPHATE
  12. TRETINOIN. [Concomitant]
     Active Substance: TRETINOIN
  13. ALLEGRA [Concomitant]
     Active Substance: FEXOFENADINE HYDROCHLORIDE

REACTIONS (1)
  - Ear infection [Unknown]
